FAERS Safety Report 5964349-3 (Version None)
Quarter: 2008Q4

REPORT INFORMATION
  Report Type: 
  Country: None (occurrence: None)
  Receive Date: 20081124
  Receipt Date: 20081113
  Transmission Date: 20090506
  Serious: Yes (Disabling)
  Sender: FDA-Public Use
  Company Number: SG-BAXTER-2008BH009260

PATIENT

DRUGS (1)
  1. LACTATED RINGER'S [Suspect]
     Indication: EYE IRRIGATION
     Dosage: DOSE UNIT:UNKNOWN
     Route: 061
     Dates: start: 20080729, end: 20080729

REACTIONS (3)
  - BACTERIAL CULTURE POSITIVE [None]
  - BLINDNESS [None]
  - PRODUCT CONTAMINATION [None]
